FAERS Safety Report 5464408-8 (Version None)
Quarter: 2007Q3

REPORT INFORMATION
  Report Type: 
  Country: None (occurrence: None)
  Receive Date: 20070921
  Receipt Date: 20070910
  Transmission Date: 20080115
  Serious: Yes (Death, Hospitalization)
  Sender: FDA-Public Use
  Company Number: BR-ROCHE-511071

PATIENT
  Age: 72 Year
  Sex: Female
  Weight: 80 kg

DRUGS (5)
  1. XELODA [Suspect]
     Indication: BREAST CANCER
     Dosage: STRENGTH REPORTED AS 150MG/TAB
     Route: 048
     Dates: start: 20070610, end: 20070601
  2. XELODA [Suspect]
     Dosage: STRENGTH REPORTED AS 150+500MG/TAB
     Route: 048
     Dates: start: 20070601, end: 20070905
  3. INSULIN [Concomitant]
     Dates: end: 20070907
  4. REMERON [Concomitant]
     Indication: DEPRESSION
     Dates: end: 20070907
  5. UNSPECIFIED DRUG [Concomitant]
     Dosage: DRUG NAME REPORTED AS OMEGA 3.
     Dates: end: 20070907

REACTIONS (5)
  - ABDOMINAL PAIN [None]
  - DEATH [None]
  - DEHYDRATION [None]
  - DIARRHOEA [None]
  - FLATULENCE [None]
